FAERS Safety Report 4331663-7 (Version None)
Quarter: 2004Q2

REPORT INFORMATION
  Report Type: 
  Country: None (occurrence: None)
  Receive Date: 20040405
  Receipt Date: 20031209
  Transmission Date: 20050107
  Serious: Yes (Hospitalization)
  Sender: FDA-Public Use
  Company Number: US-BRISTOL-MYERS SQUIBB COMPANY-12464228

PATIENT

DRUGS (1)
  1. TEQUIN [Suspect]

REACTIONS (1)
  - HYPOGLYCAEMIA [None]
